FAERS Safety Report 17646381 (Version 2)
Quarter: 2020Q2

REPORT INFORMATION
  Report Type: Report from Study
  Country: US (occurrence: US)
  Receive Date: 20200408
  Receipt Date: 20200505
  Transmission Date: 20200713
  Serious: Yes (Hospitalization)
  Sender: FDA-Public Use
  Company Number: US-BAYER-2020-038450

PATIENT
  Age: 75 Year
  Sex: Male

DRUGS (1)
  1. STIVARGA [Suspect]
     Active Substance: REGORAFENIB
     Indication: COLORECTAL CANCER
     Dosage: DAILY DOSE 160 MG FOR 21 DAYS ON, 7 DAYS OFF
     Route: 048
     Dates: start: 20200219

REACTIONS (4)
  - Fatigue [Not Recovered/Not Resolved]
  - Pre-existing condition improved [Recovering/Resolving]
  - Abdominal discomfort [Unknown]
  - Constipation [Recovered/Resolved]
